FAERS Safety Report 12552243 (Version 1)
Quarter: 2016Q3

REPORT INFORMATION
  Report Type: Spontaneous
  Country: US (occurrence: US)
  Receive Date: 20160713
  Receipt Date: 20160713
  Transmission Date: 20161109
  Serious: Yes (Other)
  Sender: FDA-Public Use
  Company Number: US-ASTRAZENECA-2016SE74619

PATIENT

DRUGS (2)
  1. HAD TO REMOVE GALLBLADDER [Concomitant]
  2. PRILOSEC OTC [Suspect]
     Active Substance: OMEPRAZOLE MAGNESIUM
     Route: 048

REACTIONS (2)
  - Hepatic enzyme increased [Unknown]
  - Intestinal polyp [Unknown]
